FAERS Safety Report 23473221 (Version 2)
Quarter: 2024Q1

REPORT INFORMATION
  Report Type: Other
  Country: GB (occurrence: GB)
  Receive Date: 20240203
  Receipt Date: 20240306
  Transmission Date: 20240410
  Serious: Yes (Death, Hospitalization)
  Sender: FDA-Public Use
  Company Number: None

PATIENT
  Age: 73 Year
  Sex: Female
  Weight: 60.5 kg

DRUGS (61)
  1. PREDNISOLONE [Suspect]
     Active Substance: PREDNISOLONE
     Indication: Lymphoma transformation
     Dosage: 100 MILLIGRAM (ON 20 FEB 2021, THE PATIENT RECEIVED THE MOST RECENT DOSE OF PREDNISOLONE (100 MG))
     Route: 048
     Dates: start: 20201124
  2. DOXORUBICIN [Suspect]
     Active Substance: DOXORUBICIN
     Indication: Lymphoma transformation
     Dosage: UNK
     Route: 065
  3. DOXORUBICIN [Suspect]
     Active Substance: DOXORUBICIN
     Dosage: 80 MG/M2, EVERY 3 WEEKS (INFUSION) (16 FEB 2021 AT 3:25 PM, SHE RECEIVED THE MOST RECENT DOSE OF DOX
     Route: 042
     Dates: start: 20201124
  4. CYCLOPHOSPHAMIDE [Suspect]
     Active Substance: CYCLOPHOSPHAMIDE
     Indication: Lymphoma transformation
     Dosage: UNK
     Route: 065
  5. CYCLOPHOSPHAMIDE [Suspect]
     Active Substance: CYCLOPHOSPHAMIDE
     Dosage: 1260 MG/M2, EVERY 3 WEEKS (ON 16/FEB/2021 AT 3:55 PM, THE PATIENT RECEIVED THE MOST RECENT DOSE OF C
     Route: 042
     Dates: start: 20231124
  6. GLOFITAMAB [Suspect]
     Active Substance: GLOFITAMAB
     Indication: Lymphoma transformation
     Dosage: 2.5 MG, EVERY 3 WEEKS (ON 02/MAR/2021 12:42 PM, THE PATIENT RECEIVED THE MOST RECENT DOSE OF GLOFITA
     Route: 042
     Dates: start: 20201222
  7. GLOFITAMAB [Suspect]
     Active Substance: GLOFITAMAB
     Dosage: UNK
     Route: 065
  8. RITUXIMAB [Suspect]
     Active Substance: RITUXIMAB
     Indication: Lymphoma transformation
     Dosage: 600 MG/M2, EVERY 3 WEEKS (ON 16 FEB 2021, 12:30 PM THE PATIENT RECEIVED THE MOST RECENT DOSE OF RITU
     Route: 042
     Dates: start: 20201124
  9. RITUXIMAB [Suspect]
     Active Substance: RITUXIMAB
     Dosage: UNK
     Route: 065
  10. VINCRISTINE [Suspect]
     Active Substance: VINCRISTINE
     Indication: Lymphoma transformation
     Dosage: 2 MG/M2, EVERY 3 WEEKS (ON 16 FEB 2021 AT 3:00 PM, THE PATIENT RECEIVED THE MOST RECENT DOSE OF VINC
     Route: 042
     Dates: start: 20201124
  11. VINCRISTINE [Suspect]
     Active Substance: VINCRISTINE
     Dosage: UNK
     Route: 065
  12. ALLOPURINOL [Concomitant]
     Active Substance: ALLOPURINOL
     Indication: Product used for unknown indication
     Dosage: UNK
     Route: 065
     Dates: start: 20201118
  13. CHLORPHENIRAMINE MALEATE [Concomitant]
     Active Substance: CHLORPHENIRAMINE MALEATE
     Indication: Rash maculo-papular
     Dosage: UNK
     Route: 065
     Dates: start: 20201217
  14. CHLORPHENIRAMINE MALEATE [Concomitant]
     Active Substance: CHLORPHENIRAMINE MALEATE
     Dosage: 10 MILLIGRAM
     Route: 042
     Dates: start: 20210209, end: 20210209
  15. CHLORPHENIRAMINE MALEATE [Concomitant]
     Active Substance: CHLORPHENIRAMINE MALEATE
     Dosage: 10 MILLIGRAM
     Route: 042
     Dates: start: 20210216, end: 20210216
  16. CHLORPHENIRAMINE MALEATE [Concomitant]
     Active Substance: CHLORPHENIRAMINE MALEATE
     Dosage: 10 MILLIGRAM
     Route: 042
     Dates: start: 20210302, end: 20210302
  17. CHLORPHENIRAMINE MALEATE [Concomitant]
     Active Substance: CHLORPHENIRAMINE MALEATE
     Dosage: 10 MILLIGRAM
     Route: 042
     Dates: start: 20210309, end: 20210309
  18. CHLORPHENIRAMINE MALEATE [Concomitant]
     Active Substance: CHLORPHENIRAMINE MALEATE
     Dosage: 10 MILLIGRAM
     Route: 042
     Dates: start: 20210323, end: 20210323
  19. CHLORPHENIRAMINE MALEATE [Concomitant]
     Active Substance: CHLORPHENIRAMINE MALEATE
     Dosage: 10 MILLIGRAM
     Route: 042
     Dates: start: 20210614, end: 20210614
  20. CHLORPHENIRAMINE MALEATE [Concomitant]
     Active Substance: CHLORPHENIRAMINE MALEATE
     Dosage: 10 MILLIGRAM
     Route: 042
     Dates: start: 20210621, end: 20210621
  21. CHLORPHENIRAMINE MALEATE [Concomitant]
     Active Substance: CHLORPHENIRAMINE MALEATE
     Dosage: 10 MILLIGRAM
     Route: 042
     Dates: start: 20210816, end: 20210816
  22. CHLORPHENIRAMINE MALEATE [Concomitant]
     Active Substance: CHLORPHENIRAMINE MALEATE
     Dosage: 10 MILLIGRAM
     Route: 042
     Dates: start: 20211011, end: 20211011
  23. CHLORPHENIRAMINE MALEATE [Concomitant]
     Active Substance: CHLORPHENIRAMINE MALEATE
     Dosage: 10 MILLIGRAM
     Route: 042
     Dates: start: 20211206, end: 20211206
  24. CHLORPHENIRAMINE MALEATE [Concomitant]
     Active Substance: CHLORPHENIRAMINE MALEATE
     Dosage: 10 MILLIGRAM
     Route: 042
     Dates: start: 20220131, end: 20220131
  25. CODEINE [Concomitant]
     Active Substance: CODEINE
     Indication: Product used for unknown indication
     Dosage: UNK
     Route: 065
     Dates: start: 20201123
  26. DEXAMETHASONE [Concomitant]
     Active Substance: DEXAMETHASONE
     Indication: Product used for unknown indication
     Dosage: 20 MILLIGRAM
     Route: 042
     Dates: start: 20210209, end: 20210209
  27. DEXAMETHASONE [Concomitant]
     Active Substance: DEXAMETHASONE
     Dosage: 20 MILLIGRAM
     Route: 042
     Dates: start: 20210302, end: 20210302
  28. DEXAMETHASONE [Concomitant]
     Active Substance: DEXAMETHASONE
     Dosage: 20 MILLIGRAM
     Route: 042
     Dates: start: 20210323, end: 20210323
  29. DEXAMETHASONE [Concomitant]
     Active Substance: DEXAMETHASONE
     Dosage: 20 MILLIGRAM
     Route: 042
     Dates: start: 20210621, end: 20210621
  30. DEXAMETHASONE [Concomitant]
     Active Substance: DEXAMETHASONE
     Dosage: 20 MILLIGRAM
     Route: 042
     Dates: start: 20210816, end: 20210816
  31. DEXAMETHASONE [Concomitant]
     Active Substance: DEXAMETHASONE
     Dosage: 20 MILLIGRAM
     Route: 042
     Dates: start: 20211011, end: 20211011
  32. DEXAMETHASONE [Concomitant]
     Active Substance: DEXAMETHASONE
     Dosage: 20 MILLIGRAM
     Route: 042
     Dates: start: 20211206, end: 20211206
  33. DEXAMETHASONE [Concomitant]
     Active Substance: DEXAMETHASONE
     Dosage: 20 MILLIGRAM
     Route: 042
     Dates: start: 20220131, end: 20220131
  34. FILGRASTIM [Concomitant]
     Active Substance: FILGRASTIM
     Indication: Neutropenia
     Dosage: UNK
     Route: 065
     Dates: start: 20201129
  35. FILGRASTIM [Concomitant]
     Active Substance: FILGRASTIM
     Dosage: UNK
     Route: 065
     Dates: start: 20201129
  36. FILGRASTIM [Concomitant]
     Active Substance: FILGRASTIM
     Dosage: UNK
     Route: 065
     Dates: start: 20201222
  37. FILGRASTIM [Concomitant]
     Active Substance: FILGRASTIM
     Dosage: UNK
     Route: 065
     Dates: start: 20210111
  38. FILGRASTIM [Concomitant]
     Active Substance: FILGRASTIM
     Dosage: UNK
     Route: 065
     Dates: start: 20210201
  39. FILGRASTIM [Concomitant]
     Active Substance: FILGRASTIM
     Dosage: UNK
     Route: 065
     Dates: start: 20210222
  40. FILGRASTIM [Concomitant]
     Active Substance: FILGRASTIM
     Dosage: UNK
     Route: 065
     Dates: start: 20210315
  41. FILGRASTIM [Concomitant]
     Active Substance: FILGRASTIM
     Dosage: UNK
     Route: 042
     Dates: start: 20210410, end: 20210413
  42. FILGRASTIM [Concomitant]
     Active Substance: FILGRASTIM
     Dosage: UNK
     Route: 065
     Dates: start: 20210510, end: 20210513
  43. FILGRASTIM [Concomitant]
     Active Substance: FILGRASTIM
     Dosage: UNK
     Route: 065
     Dates: start: 20210524, end: 20210527
  44. FILGRASTIM [Concomitant]
     Active Substance: FILGRASTIM
     Dosage: UNK
     Route: 065
     Dates: start: 20210517, end: 20210520
  45. HYDROCORTISONE [Concomitant]
     Active Substance: HYDROCORTISONE
     Indication: Product used for unknown indication
     Dosage: 100 MILLIGRAM
     Route: 042
     Dates: start: 20210614, end: 20210614
  46. OMEPRAZOLE [Concomitant]
     Active Substance: OMEPRAZOLE
     Indication: Product used for unknown indication
     Dosage: UNK
     Route: 065
     Dates: start: 20201118
  47. ACETAMINOPHEN [Concomitant]
     Active Substance: ACETAMINOPHEN
     Indication: Abdominal pain
     Dosage: UNK
     Route: 065
     Dates: start: 20201123
  48. ACETAMINOPHEN [Concomitant]
     Active Substance: ACETAMINOPHEN
     Dosage: 1000 MILLIGRAM
     Route: 048
     Dates: start: 20210216, end: 20210216
  49. ACETAMINOPHEN [Concomitant]
     Active Substance: ACETAMINOPHEN
     Dosage: 1000 MILLIGRAM
     Route: 048
     Dates: start: 20210323, end: 20210323
  50. ACETAMINOPHEN [Concomitant]
     Active Substance: ACETAMINOPHEN
     Dosage: 1000 MILLIGRAM
     Route: 048
     Dates: start: 20210302, end: 20210302
  51. ACETAMINOPHEN [Concomitant]
     Active Substance: ACETAMINOPHEN
     Dosage: 1000 MILLIGRAM
     Route: 048
     Dates: start: 20210816, end: 20210816
  52. ACETAMINOPHEN [Concomitant]
     Active Substance: ACETAMINOPHEN
     Dosage: 1000 MILLIGRAM
     Route: 048
     Dates: start: 20220131, end: 20220131
  53. ACETAMINOPHEN [Concomitant]
     Active Substance: ACETAMINOPHEN
     Dosage: 1000 MILLIGRAM
     Route: 048
     Dates: start: 20210621, end: 20210621
  54. ACETAMINOPHEN [Concomitant]
     Active Substance: ACETAMINOPHEN
     Dosage: 1000 MILLIGRAM
     Route: 048
     Dates: start: 20211011, end: 20211011
  55. ACETAMINOPHEN [Concomitant]
     Active Substance: ACETAMINOPHEN
     Dosage: 1000 MILLIGRAM
     Route: 048
     Dates: start: 20210614, end: 20210614
  56. ACETAMINOPHEN [Concomitant]
     Active Substance: ACETAMINOPHEN
     Dosage: 1000 MILLIGRAM
     Route: 048
     Dates: start: 20210309, end: 20210309
  57. ACETAMINOPHEN [Concomitant]
     Active Substance: ACETAMINOPHEN
     Dosage: 1000 MILLIGRAM
     Route: 048
     Dates: start: 20211206, end: 20211206
  58. ACETAMINOPHEN [Concomitant]
     Active Substance: ACETAMINOPHEN
     Dosage: 1000 MILLIGRAM
     Route: 048
     Dates: start: 20210209, end: 20210209
  59. SENNA [Concomitant]
     Active Substance: SENNA LEAF\SENNOSIDES\SENNOSIDES A AND B
     Indication: Constipation
     Dosage: UNK
     Route: 065
     Dates: start: 20201124
  60. PIPERACILLIN SODIUM\TAZOBACTAM SODIUM [Concomitant]
     Active Substance: PIPERACILLIN SODIUM\TAZOBACTAM SODIUM
     Indication: Pyrexia
     Dosage: UNK
     Route: 065
     Dates: start: 20220617
  61. VALGANCICLOVIR [Concomitant]
     Active Substance: VALGANCICLOVIR
     Indication: Product used for unknown indication
     Dosage: UNK
     Route: 065
     Dates: start: 20210426, end: 20210513

REACTIONS (2)
  - Encephalitis cytomegalovirus [Fatal]
  - Cytomegalovirus infection reactivation [Not Recovered/Not Resolved]

NARRATIVE: CASE EVENT DATE: 20210308
